FAERS Safety Report 10622307 (Version 1)
Quarter: 2014Q4

REPORT INFORMATION
  Report Type: Report from Study
  Country: JP (occurrence: JP)
  Receive Date: 20141203
  Receipt Date: 20141203
  Transmission Date: 20150529
  Serious: Yes (Hospitalization)
  Sender: FDA-Public Use
  Company Number: JP-AMGEN-JPNCT2014093689

PATIENT
  Age: 43 Year
  Sex: Male
  Weight: 72 kg

DRUGS (4)
  1. REVOLADE [Concomitant]
     Active Substance: ELTROMBOPAG
     Indication: IMMUNE THROMBOCYTOPENIC PURPURA
     Dosage: 37.5 MG, UNK
     Route: 048
     Dates: start: 20130322, end: 20131011
  2. GASTER [Concomitant]
     Active Substance: FAMOTIDINE
     Indication: GASTRITIS
     Dosage: UNK
     Route: 048
  3. ROMIPLOSTIM - KHK [Suspect]
     Active Substance: ROMIPLOSTIM
     Indication: IMMUNE THROMBOCYTOPENIC PURPURA
     Dosage: 7 MUG/KG, QD
     Route: 058
     Dates: start: 20131012, end: 20140517
  4. AMLODIN [Concomitant]
     Active Substance: AMLODIPINE BESYLATE
     Indication: HYPERTENSION
     Dosage: UNK
     Route: 048

REACTIONS (1)
  - Cerebral infarction [Unknown]

NARRATIVE: CASE EVENT DATE: 20140426
